FAERS Safety Report 7497061-2 (Version None)
Quarter: 2011Q2

REPORT INFORMATION
  Report Type: 
  Country: None (occurrence: None)
  Receive Date: 20110523
  Receipt Date: 20110516
  Transmission Date: 20111010
  Serious: Yes (Death)
  Sender: FDA-Public Use
  Company Number: IE-MEDIMMUNE-MEDI-0011924

PATIENT
  Sex: Female

DRUGS (6)
  1. CAPTOPRIL [Concomitant]
     Route: 048
  2. SYNAGIS [Suspect]
     Route: 030
     Dates: start: 20101022, end: 20101022
  3. SPIRONOLACTONE [Concomitant]
     Route: 048
  4. LANSOPRAZOLE [Concomitant]
     Route: 048
  5. DIGOXIN [Concomitant]
     Route: 048
  6. FUROSEMIDE [Concomitant]
     Route: 048

REACTIONS (2)
  - CARDIAC ARREST [None]
  - CARDIAC FAILURE [None]
